FAERS Safety Report 9890986 (Version 1)
Quarter: 2014Q1

REPORT INFORMATION
  Report Type: Spontaneous
  Country: CA (occurrence: None)
  Receive Date: 20140210
  Receipt Date: 20140210
  Transmission Date: 20141002
  Serious: Yes (Other)
  Sender: FDA-Public Use
  Company Number: AG-2014-000039

PATIENT
  Sex: Male

DRUGS (1)
  1. LEUKERAN [Suspect]
     Indication: NEOPLASM MALIGNANT
     Route: 048
     Dates: start: 20140109, end: 20140115

REACTIONS (5)
  - Paraesthesia oral [None]
  - Oesophageal pain [None]
  - Lip swelling [None]
  - Dyspnoea [None]
  - Oesophageal disorder [None]
